FAERS Safety Report 5278615-0 (Version None)
Quarter: 2007Q1

REPORT INFORMATION
  Report Type: 
  Country: None (occurrence: None)
  Receive Date: 20070328
  Receipt Date: 20070322
  Transmission Date: 20070707
  Serious: Yes (Hospitalization)
  Sender: FDA-Public Use
  Company Number: FR-GLAXOSMITHKLINE-B0463690A

PATIENT
  Age: 60 Year
  Sex: Male

DRUGS (12)
  1. CLAVENTIN [Suspect]
     Indication: HYPERTHERMIA
     Route: 042
     Dates: start: 20070106, end: 20070113
  2. CIPROFLOXACIN HCL [Suspect]
     Indication: HYPERTHERMIA
     Route: 042
     Dates: start: 20061213, end: 20070113
  3. TARGOCID [Suspect]
     Indication: HYPERTHERMIA
     Route: 042
     Dates: start: 20061227, end: 20070113
  4. NISIS [Suspect]
     Indication: HYPERTENSION
     Route: 065
     Dates: start: 20061227, end: 20070112
  5. VFEND [Suspect]
     Indication: HYPERTHERMIA
     Route: 065
     Dates: start: 20061221, end: 20070112
  6. ZOPHREN [Concomitant]
     Indication: ACUTE MYELOID LEUKAEMIA
     Dosage: 8MG PER DAY
     Route: 042
     Dates: start: 20061215, end: 20061217
  7. ARACYTINE [Concomitant]
     Indication: ACUTE MYELOID LEUKAEMIA
     Dosage: 400MG PER DAY
     Route: 042
     Dates: start: 20061215, end: 20061221
  8. CERUBIDINE [Concomitant]
     Indication: ACUTE MYELOID LEUKAEMIA
     Dosage: 120MG PER DAY
     Route: 042
     Dates: start: 20061215, end: 20061217
  9. CEFTRIAXONE [Concomitant]
     Indication: HYPERTHERMIA
     Dates: start: 20061213, end: 20061221
  10. VANCOMYCIN [Concomitant]
     Indication: HYPERTHERMIA
     Dates: start: 20061215, end: 20061227
  11. TIENAM [Concomitant]
     Indication: HYPERTHERMIA
     Dates: start: 20061220, end: 20070106
  12. PERINDOPRIL ERBUMINE [Concomitant]
     Indication: HYPERTENSION
     Dates: start: 20061218, end: 20061227

REACTIONS (4)
  - BIOPSY KIDNEY ABNORMAL [None]
  - BLOOD CREATININE INCREASED [None]
  - RENAL FAILURE ACUTE [None]
  - URINARY RETENTION [None]
